FAERS Safety Report 10562998 (Version 1)
Quarter: 2014Q4

REPORT INFORMATION
  Report Type: Spontaneous
  Country: US (occurrence: None)
  Receive Date: 20141103
  Receipt Date: 20141103
  Transmission Date: 20150529
  Serious: Yes (Other)
  Sender: FDA-Public Use
  Company Number: None

PATIENT
  Age: 50 Year
  Sex: Female
  Weight: 90.72 kg

DRUGS (1)
  1. CHANTIX [Suspect]
     Active Substance: VARENICLINE TARTRATE
     Indication: SMOKING CESSATION THERAPY
     Dosage: 1   TWICE DAILY TAKEN BY MOUTH
     Route: 048
     Dates: start: 20140901, end: 20141102

REACTIONS (3)
  - Asthma [None]
  - Pulmonary congestion [None]
  - Drug dependence [None]
